FAERS Safety Report 9763819 (Version 2)
Quarter: 2014Q1

REPORT INFORMATION
  Report Type: Spontaneous
  Country: US (occurrence: US)
  Receive Date: 20131216
  Receipt Date: 20140107
  Transmission Date: 20141002
  Serious: No
  Sender: FDA-Public Use
  Company Number: US-BIOGENIDEC-2013BI113430

PATIENT
  Age: 60 Year
  Sex: Female

DRUGS (3)
  1. TECFIDERA [Suspect]
     Indication: PRODUCT USED FOR UNKNOWN INDICATION
     Dates: start: 201305
  2. TECFIDERA [Suspect]
     Indication: PRODUCT USED FOR UNKNOWN INDICATION
     Route: 048
     Dates: start: 20130923
  3. AVONEX [Concomitant]
     Route: 030

REACTIONS (2)
  - Drug ineffective [Unknown]
  - Gait disturbance [Unknown]
